FAERS Safety Report 7029151-2 (Version None)
Quarter: 2010Q4

REPORT INFORMATION
  Report Type: 
  Country: None (occurrence: None)
  Receive Date: 20101005
  Receipt Date: 20100928
  Transmission Date: 20110411
  Serious: No
  Sender: FDA-Public Use
  Company Number: US-PFIZER INC-2010123898

PATIENT
  Sex: Female

DRUGS (1)
  1. DEPO-PROVERA [Suspect]
     Indication: CONTRACEPTION
     Dosage: 150 MG/ML FOR EVERY THREE MONTHS
     Route: 030
     Dates: start: 20040101

REACTIONS (3)
  - METRORRHAGIA [None]
  - NECK PAIN [None]
  - PAIN IN EXTREMITY [None]
